FAERS Safety Report 10794315 (Version 2)
Quarter: 2015Q1

REPORT INFORMATION
  Report Type: Spontaneous
  Country: US (occurrence: US)
  Receive Date: 20150213
  Receipt Date: 20150313
  Transmission Date: 20150721
  Serious: Yes (Hospitalization)
  Sender: FDA-Public Use
  Company Number: US-B.I. PHARMACEUTICALS,INC./RIDGEFIELD-2015-BI-06987BP

PATIENT
  Age: 83 Year
  Sex: Female

DRUGS (1)
  1. COMBIVENT [Suspect]
     Active Substance: ALBUTEROL SULFATE\IPRATROPIUM BROMIDE
     Indication: BRONCHIOLITIS
     Dosage: DOSE PER APPLICATION: 20 MCG / 100 MCG; DAILY DOSE: 80 MCG / 400 MCG
     Route: 055
     Dates: start: 2011

REACTIONS (11)
  - Ligament sprain [Recovered/Resolved with Sequelae]
  - Hip fracture [Recovered/Resolved with Sequelae]
  - Joint injury [Recovered/Resolved with Sequelae]
  - Pharyngeal erythema [Not Recovered/Not Resolved]
  - Product use issue [Not Recovered/Not Resolved]
  - Fall [Recovered/Resolved]
  - Ear infection [Recovered/Resolved]
  - Oropharyngeal pain [Not Recovered/Not Resolved]
  - Joint dislocation [Recovered/Resolved with Sequelae]
  - Gait disturbance [Not Recovered/Not Resolved]
  - Hearing impaired [Not Recovered/Not Resolved]

NARRATIVE: CASE EVENT DATE: 2011
